FAERS Safety Report 6032127-5 (Version None)
Quarter: 2009Q1

REPORT INFORMATION
  Report Type: 
  Country: None (occurrence: None)
  Receive Date: 20090108
  Receipt Date: 20081231
  Transmission Date: 20090719
  Serious: Yes (Other)
  Sender: FDA-Public Use
  Company Number: US-ASTRAZENECA-2006UW21263

PATIENT
  Age: 50 Year
  Sex: Female
  Weight: 86.2 kg

DRUGS (2)
  1. SEROQUEL [Suspect]
     Indication: INSOMNIA
     Dosage: 200 MG - 800 MG
     Route: 048
     Dates: start: 20020601, end: 20060113
  2. METHADONE (PRESCRIBED) [Concomitant]
     Route: 048
     Dates: start: 20060101

REACTIONS (16)
  - ARTHRALGIA [None]
  - ASTHMA [None]
  - CHEST PAIN [None]
  - DIABETES MELLITUS [None]
  - DIABETIC FOOT [None]
  - DIABETIC NEUROPATHY [None]
  - DYSPNOEA [None]
  - FALL [None]
  - FIBROMYALGIA [None]
  - GLYCOSURIA [None]
  - HYPERTENSION [None]
  - HYPOTHYROIDISM [None]
  - LUNG DISORDER [None]
  - OSTEOARTHRITIS [None]
  - PAIN IN EXTREMITY [None]
  - PNEUMONIA [None]
